FAERS Safety Report 24771460 (Version 1)
Quarter: 2024Q4

REPORT INFORMATION
  Report Type: Spontaneous
  Country: US (occurrence: US)
  Receive Date: 20241224
  Receipt Date: 20241224
  Transmission Date: 20250114
  Serious: No
  Sender: NOVARTIS
  Company Number: US-002147023-NVSC2024US243997

PATIENT
  Sex: Male

DRUGS (2)
  1. LEQVIO [Interacting]
     Active Substance: INCLISIRAN SODIUM
     Indication: Hyperlipidaemia
     Dosage: 284 ML (AS NEEDED)
     Route: 003
     Dates: start: 20230202, end: 20241202
  2. LEQVIO [Interacting]
     Active Substance: INCLISIRAN SODIUM
     Dosage: 284 MG/KG
     Route: 003
     Dates: start: 20240523, end: 20240823

REACTIONS (1)
  - Drug ineffective [Not Recovered/Not Resolved]
